FAERS Safety Report 19161239 (Version 1)
Quarter: 2021Q2

REPORT INFORMATION
  Report Type: Spontaneous
  Country: US (occurrence: US)
  Receive Date: 20210421
  Receipt Date: 20210421
  Transmission Date: 20210717
  Serious: No
  Sender: FDA-Public Use
  Company Number: US-JNJFOC-20210413989

PATIENT
  Age: 28 Year
  Sex: Female

DRUGS (1)
  1. WOMENS ROGAINE [Suspect]
     Active Substance: MINOXIDIL
     Indication: ALOPECIA
     Dosage: DOSE: FILLED THE LITTLE DROPPER
     Route: 061
     Dates: start: 20210313

REACTIONS (6)
  - Application site urticaria [Recovered/Resolved]
  - Hair texture abnormal [Recovered/Resolved]
  - Renal pain [Recovered/Resolved]
  - Palpitations [Recovered/Resolved]
  - Incorrect dose administered [Unknown]
  - Somnolence [Recovered/Resolved]

NARRATIVE: CASE EVENT DATE: 20210313
